FAERS Safety Report 10182496 (Version 4)
Quarter: 2014Q3

REPORT INFORMATION
  Report Type: Spontaneous
  Country: US (occurrence: US)
  Receive Date: 20140520
  Receipt Date: 20140714
  Transmission Date: 20150326
  Serious: Yes (Other)
  Sender: FDA-Public Use
  Company Number: US-JNJFOC-20140510630

PATIENT
  Sex: Male

DRUGS (1)
  1. RISPERDAL [Suspect]
     Active Substance: RISPERIDONE
     Indication: MENTAL DISORDER
     Route: 048
     Dates: start: 2004, end: 20091126

REACTIONS (33)
  - Disturbance in attention [Unknown]
  - Tremor [Unknown]
  - Tic [Unknown]
  - Chest pain [Unknown]
  - Urinary incontinence [Unknown]
  - Faecal incontinence [Unknown]
  - Suicidal ideation [Unknown]
  - Obesity [Not Recovered/Not Resolved]
  - Dyspnoea [Unknown]
  - Diabetes mellitus [Unknown]
  - Gynaecomastia [Unknown]
  - Insomnia [Unknown]
  - Back pain [Unknown]
  - Headache [Unknown]
  - Transient ischaemic attack [Unknown]
  - Skin discolouration [Unknown]
  - Agitation [Unknown]
  - Fear [Unknown]
  - Hyperprolactinaemia [Unknown]
  - Memory impairment [Unknown]
  - Anxiety [Unknown]
  - Mental impairment [Unknown]
  - Somnolence [Unknown]
  - Loss of consciousness [Unknown]
  - Confusional state [Unknown]
  - Nausea [Unknown]
  - Gastrointestinal disorder [Unknown]
  - Cerebrovascular accident [Unknown]
  - Emotional distress [Unknown]
  - Balance disorder [Unknown]
  - Muscle twitching [Unknown]
  - Vomiting [Unknown]
  - Oedema genital [Unknown]
